FAERS Safety Report 20012201 (Version 2)
Quarter: 2021Q4

REPORT INFORMATION
  Report Type: Spontaneous
  Country: US (occurrence: US)
  Receive Date: 20211028
  Receipt Date: 20211109
  Transmission Date: 20220303
  Serious: Yes (Other)
  Sender: FDA-Public Use
  Company Number: US-SA-2021SA356462

PATIENT
  Age: 65 Year
  Sex: Male

DRUGS (1)
  1. DOCETAXEL [Suspect]
     Active Substance: DOCETAXEL
     Indication: Prostate cancer stage II
     Dosage: UNK, QCY

REACTIONS (10)
  - Paronychia [Recovering/Resolving]
  - Yellow nail syndrome [Recovering/Resolving]
  - Onychalgia [Recovering/Resolving]
  - Nail disorder [Recovering/Resolving]
  - Leukonychia [Recovering/Resolving]
  - Purulent discharge [Recovering/Resolving]
  - Erythema induratum [Recovering/Resolving]
  - Excessive granulation tissue [Recovering/Resolving]
  - Onycholysis [Recovering/Resolving]
  - Ingrowing nail [Recovering/Resolving]
